FAERS Safety Report 5514141-9 (Version None)
Quarter: 2007Q4

REPORT INFORMATION
  Report Type: 
  Country: None (occurrence: None)
  Receive Date: 20071106
  Receipt Date: 20070205
  Transmission Date: 20080405
  Serious: Yes (Death)
  Sender: FDA-Public Use
  Company Number: US200701003789

PATIENT
  Age: 39 Year
  Sex: Male
  Weight: 77.1 kg

DRUGS (3)
  1. PROZAC [Suspect]
     Indication: DEPRESSION
     Dosage: 20 MG, DAILY (1/D), ORAL
     Route: 048
     Dates: start: 20030325
  2. SINEQUAN [Concomitant]
  3. AMBIEN [Concomitant]

REACTIONS (1)
  - COMPLETED SUICIDE [None]
